FAERS Safety Report 6581440-1 (Version None)
Quarter: 2010Q1

REPORT INFORMATION
  Report Type: 
  Country: None (occurrence: None)
  Receive Date: 20100215
  Receipt Date: 20100208
  Transmission Date: 20100710
  Serious: Yes (Hospitalization)
  Sender: FDA-Public Use
  Company Number: A0843490A

PATIENT
  Age: 78 Year
  Sex: Female

DRUGS (6)
  1. COREG CR [Suspect]
     Indication: HYPERTENSION
     Dosage: 40MG PER DAY
     Route: 048
     Dates: start: 20080801
  2. MINOXIDIL [Concomitant]
  3. SYNTHROID [Concomitant]
  4. WARFARIN [Concomitant]
  5. NEXIUM [Concomitant]
  6. PROBIOTIC [Concomitant]

REACTIONS (1)
  - ATRIAL FIBRILLATION [None]
